FAERS Safety Report 20613485 (Version 2)
Quarter: 2022Q2

REPORT INFORMATION
  Report Type: Other
  Country: US (occurrence: None)
  Receive Date: 20220319
  Receipt Date: 20220514
  Transmission Date: 20220720
  Serious: Yes (Other)
  Sender: FDA-Public Use
  Company Number: US-ROCHE-3054946

PATIENT
  Sex: Male

DRUGS (3)
  1. ESBRIET [Suspect]
     Active Substance: PIRFENIDONE
     Indication: Pulmonary fibrosis
     Dosage: TAKE 1 TABLET BY MOUTH EVERY 8 HOURS
     Route: 048
  2. TORSEMIDE [Concomitant]
     Active Substance: TORSEMIDE
  3. FAMOTIDINE [Concomitant]
     Active Substance: FAMOTIDINE

REACTIONS (1)
  - Hip fracture [Unknown]
